FAERS Safety Report 6078980-0 (Version None)
Quarter: 2009Q1

REPORT INFORMATION
  Report Type: 
  Country: None (occurrence: None)
  Receive Date: 20090216
  Receipt Date: 20090209
  Transmission Date: 20090719
  Serious: No
  Sender: FDA-Public Use
  Company Number: BE-ELI_LILLY_AND_COMPANY-BE200808002892

PATIENT
  Sex: Female
  Weight: 97 kg

DRUGS (5)
  1. BYETTA [Suspect]
     Indication: DIABETES MELLITUS
     Dosage: 5 MG, 2/D
     Route: 058
     Dates: start: 20080506, end: 20080624
  2. GLUCOPHAGE [Concomitant]
     Indication: DIABETES MELLITUS
     Dosage: 850 UNK, 3/D
     Route: 048
     Dates: start: 20060101
  3. DIAMICRON [Concomitant]
     Indication: DIABETES MELLITUS
     Dosage: UNK, 2/D
     Dates: start: 20080311
  4. EMCORETIC [Concomitant]
     Indication: HYPERTENSION
     Dosage: UNK, DAILY (1/D)
  5. OXYBUTYNIN CHLORIDE [Concomitant]
     Dosage: UNK, DAILY (1/D)
     Dates: start: 19980101

REACTIONS (2)
  - ABDOMINAL PAIN [None]
  - LIPASE INCREASED [None]
